FAERS Safety Report 6442748-3 (Version None)
Quarter: 2009Q4

REPORT INFORMATION
  Report Type: 
  Country: None (occurrence: None)
  Receive Date: 20091117
  Receipt Date: 20091103
  Transmission Date: 20100525
  Serious: Yes (Hospitalization)
  Sender: FDA-Public Use
  Company Number: PHHY2009US07254

PATIENT

DRUGS (1)
  1. EXJADE [Suspect]
     Indication: IRON OVERLOAD
     Dosage: 1500 MG DAILY
     Route: 048
     Dates: start: 20080108

REACTIONS (4)
  - PAIN [None]
  - PHARYNGITIS [None]
  - SICKLE CELL ANAEMIA WITH CRISIS [None]
  - UPPER RESPIRATORY TRACT INFECTION [None]
